FAERS Safety Report 7052122-7 (Version None)
Quarter: 2010Q4

REPORT INFORMATION
  Report Type: 
  Country: None (occurrence: None)
  Receive Date: 20101019
  Receipt Date: 20101005
  Transmission Date: 20110411
  Serious: Yes (Hospitalization, Disabling, Other)
  Sender: FDA-Public Use
  Company Number: PHEH2007US02903

PATIENT
  Sex: Female

DRUGS (58)
  1. ZOMETA [Suspect]
     Indication: BONE NEOPLASM MALIGNANT
     Dosage: UNK
     Dates: start: 20060101, end: 20060417
  2. ZOMETA [Suspect]
     Indication: BONE DENSITY DECREASED
  3. FEMARA [Concomitant]
     Dosage: 2.5 MG, QD
  4. ZOLADEX [Concomitant]
     Dosage: 10.8 MG, UNK
     Route: 058
  5. CELEXA [Concomitant]
     Dosage: 40 MG, QD
  6. XANAX [Concomitant]
     Dosage: 0.5 MG, TID
  7. CELEBREX [Concomitant]
     Dosage: 200 MG, BID
  8. PRILOSEC [Concomitant]
     Dosage: UNK
  9. TRICHLORMETHIAZIDE [Concomitant]
     Dosage: 48 MG, QD
  10. CITALOPRAM HYDROBROMIDE [Concomitant]
     Dosage: 40 MG, QD
  11. MULTI-VITAMINS [Concomitant]
  12. GRAPE SEED [Concomitant]
  13. ACETAMINOPHEN [Concomitant]
     Dosage: UNK
  14. LIDODERM [Concomitant]
  15. PERIDEX [Concomitant]
  16. METFORMIN HCL [Concomitant]
  17. FASLODEX [Concomitant]
  18. OXYCODONE HCL [Concomitant]
  19. NEURONTIN [Concomitant]
  20. TRICOR [Concomitant]
  21. NIASPAN [Concomitant]
  22. LANTUS [Concomitant]
  23. FISH OIL [Concomitant]
  24. CRESTOR [Concomitant]
  25. LOVAZA [Concomitant]
  26. ASPIRIN [Concomitant]
     Dosage: 81 MG, QD
  27. NEXIUM [Concomitant]
     Dosage: UNK
     Route: 048
  28. METOPROLOL SUCCINATE [Concomitant]
     Dosage: UNK
  29. AVASTIN [Concomitant]
  30. TAXOL [Concomitant]
  31. XELODA [Concomitant]
  32. FENTANYL [Concomitant]
     Route: 062
  33. LOMOTIL [Concomitant]
     Dosage: UNK
  34. MECLIZINE [Concomitant]
     Dosage: UNK
  35. EFFEXOR [Concomitant]
     Dosage: 37.5 MG, QD
     Route: 048
  36. ALEVE [Concomitant]
  37. LIPITOR [Concomitant]
     Dosage: 10 MG, QD
  38. TAMOXIFEN CITRATE [Concomitant]
     Indication: BREAST CANCER
     Dosage: 20 MG, QD
     Dates: start: 20030605
  39. CHANTIX [Concomitant]
     Indication: SMOKING CESSATION THERAPY
     Dosage: 0.5 MG, BID
  40. DEXAMETHASONE [Concomitant]
     Dosage: 20 MG, QW
  41. DIPHENHYDRAMINE HCL [Concomitant]
     Dosage: 50 MG, QW
  42. FAMOTIDINE [Concomitant]
     Dosage: 20 MG, QW
  43. VANCOMYCIN [Concomitant]
     Dosage: 1 G, QD
  44. LEVOFLOXACIN [Concomitant]
     Dosage: 500 MG, ONCE/SINGLE
  45. HYDROXYZINE [Concomitant]
     Dosage: 25 MG, QW
     Route: 048
  46. HYDROMORPHONE HCL [Concomitant]
     Dosage: 2 MG, UNK
     Route: 048
  47. EPINEPHRINE [Concomitant]
     Dosage: 1 MG, PRN
  48. HYDROCORTISONE SODIUM SUCCINATE [Concomitant]
     Dosage: 100 MG, PRN
  49. METRONIDAZOLE [Concomitant]
     Dosage: 500 MG, UNK
     Route: 048
  50. DIAZEPAM [Concomitant]
     Dosage: 10 MG, UNK
     Route: 048
  51. MORPHINE [Concomitant]
     Dosage: 4 MG, UNK
  52. DAPTOMYCIN [Concomitant]
     Dosage: 440 MG, UNK
  53. INSULIN LISPRO [Concomitant]
     Dosage: UNK
  54. PROTONIX [Concomitant]
     Dosage: 40 MG, QD
  55. PROCHLORPERAZINE [Concomitant]
     Dosage: 10 MG, PRN
  56. SENNA-S (DOCUSATE SODIUM/SENNOSIDES) [Concomitant]
     Dosage: UNK
     Route: 048
  57. AROMASIN [Concomitant]
     Indication: BREAST CANCER
  58. DESIPRAMINE HCL [Concomitant]
     Dosage: 10 MG, PRN

REACTIONS (35)
  - ACTINOMYCOSIS [None]
  - AMNESIA [None]
  - ANXIETY [None]
  - APHTHOUS STOMATITIS [None]
  - ARTHRALGIA [None]
  - BLOOD PRESSURE INCREASED [None]
  - BONE DISORDER [None]
  - CARDIAC DISORDER [None]
  - CELLULITIS [None]
  - DECREASED INTEREST [None]
  - DEPRESSION [None]
  - DIABETES MELLITUS [None]
  - DIARRHOEA [None]
  - DIZZINESS [None]
  - EXCORIATION [None]
  - FALL [None]
  - GENERAL PHYSICAL HEALTH DETERIORATION [None]
  - GLUCOSE TOLERANCE IMPAIRED [None]
  - GROIN ABSCESS [None]
  - HYPOTHYROIDISM [None]
  - JOINT SPRAIN [None]
  - LYMPHADENOPATHY [None]
  - METASTASES TO LIVER [None]
  - MUSCLE SPASMS [None]
  - OSTEOARTHRITIS [None]
  - OSTEONECROSIS OF JAW [None]
  - PAIN [None]
  - PNEUMONIA [None]
  - POLYNEUROPATHY [None]
  - PRIMARY SEQUESTRUM [None]
  - SPINAL CLAUDICATION [None]
  - TOOTH ABSCESS [None]
  - TOOTH EXTRACTION [None]
  - VERTEBRAL FORAMINAL STENOSIS [None]
  - WEIGHT INCREASED [None]
